FAERS Safety Report 14354035 (Version 1)
Quarter: 2018Q1

REPORT INFORMATION
  Report Type: Spontaneous
  Country: US (occurrence: US)
  Receive Date: 20180105
  Receipt Date: 20180105
  Transmission Date: 20180509
  Serious: No
  Sender: FDA-Public Use
  Company Number: US-ELI_LILLY_AND_COMPANY-US201801001558

PATIENT
  Sex: Male

DRUGS (1)
  1. HUMALOG [Suspect]
     Active Substance: INSULIN LISPRO
     Indication: TYPE 1 DIABETES MELLITUS
     Dosage: 36 U, PRN, 1.5 UNIT/HOUR, BUT NOW HE HAS DECREASED THE DOSE TO 1, UNIT/HR DAY AND 0.9 U/HR AT NIGHT

REACTIONS (5)
  - Blood glucose decreased [Recovering/Resolving]
  - Drug ineffective [Recovering/Resolving]
  - Liver disorder [Unknown]
  - Blood glucose increased [Recovering/Resolving]
  - Renal disorder [Unknown]
